FAERS Safety Report 8502752 (Version 2)
Quarter: 2012Q4

REPORT INFORMATION
  Report Type: 
  Country: FR (occurrence: FR)
  Receive Date: 20120410
  Receipt Date: 20120919
  Transmission Date: 20130627
  Serious: Yes (Other)
  Sender: FDA-Public Use
  Company Number: FR-TEVA-331000ISR

PATIENT
  Age: 25 None
  Sex: Female

DRUGS (3)
  1. COPAXONE [Suspect]
     Indication: MULTIPLE SCLEROSIS
     Dates: start: 201106, end: 2011
  2. COPAXONE [Suspect]
     Dates: start: 201201
  3. VAGINAL CONTRACEPTIVE RING [Concomitant]
     Indication: CONTRACEPTION
     Route: 067

REACTIONS (12)
  - Multiple sclerosis relapse [Recovered/Resolved]
  - Blood creatine phosphokinase increased [Unknown]
  - Depression [Unknown]
  - Nervousness [Not Recovered/Not Resolved]
  - Back pain [Not Recovered/Not Resolved]
  - Negative thoughts [Unknown]
  - Apathy [Unknown]
  - Fatigue [Unknown]
  - Decreased appetite [Not Recovered/Not Resolved]
  - Weight decreased [Not Recovered/Not Resolved]
  - Mood swings [Not Recovered/Not Resolved]
  - Anxiety [Not Recovered/Not Resolved]
